FAERS Safety Report 8619010-3 (Version None)
Quarter: 2012Q3

REPORT INFORMATION
  Report Type: 
  Country: None (occurrence: None)
  Receive Date: 20120824
  Receipt Date: 20120820
  Transmission Date: 20120928
  Serious: Yes (Other)
  Sender: FDA-Public Use
  Company Number: PHHY2012CN072675

PATIENT
  Age: 22 Year
  Sex: Male

DRUGS (1)
  1. VOLTAREN [Suspect]
     Indication: ARTHRALGIA
     Dosage: 2 DF
     Route: 048
     Dates: start: 20120806, end: 20120806

REACTIONS (4)
  - CHEST PAIN [None]
  - CARDIOMYOPATHY [None]
  - CARDIAC DISCOMFORT [None]
  - CARDIOVASCULAR DISORDER [None]
